FAERS Safety Report 6192932-1 (Version None)
Quarter: 2009Q2

REPORT INFORMATION
  Report Type: 
  Country: None (occurrence: None)
  Receive Date: 20090518
  Receipt Date: 20090512
  Transmission Date: 20091009
  Serious: Yes (Life-Threatening)
  Sender: FDA-Public Use
  Company Number: JP-ASTRAZENECA-2009AP03134

PATIENT
  Age: 27 Year
  Sex: Female

DRUGS (2)
  1. XYLOCAINE W/ EPINEPHRINE [Suspect]
     Dosage: DOSE UNKNOWN
     Route: 065
     Dates: start: 20090511, end: 20090511
  2. MEYLON [Concomitant]
     Dosage: DOSE UNKNOWN
     Route: 065
     Dates: start: 20090511, end: 20090511

REACTIONS (1)
  - SHOCK [None]
